FAERS Safety Report 20646607 (Version 2)
Quarter: 2023Q2

REPORT INFORMATION
  Report Type: Spontaneous
  Country: NL (occurrence: NL)
  Receive Date: 20220329
  Receipt Date: 20230628
  Transmission Date: 20230722
  Serious: Yes (Death)
  Sender: FDA-Public Use
  Company Number: NL-NOVARTISPH-PHHY2019NL123557

PATIENT
  Age: 91 Year
  Sex: Male

DRUGS (2)
  1. LEUPROLIDE ACETATE [Suspect]
     Active Substance: LEUPROLIDE ACETATE
     Indication: Prostate cancer
     Dosage: 11.25 MG, Q3MO
     Route: 058
     Dates: start: 20110614, end: 20130515
  2. LEUPROLIDE ACETATE [Suspect]
     Active Substance: LEUPROLIDE ACETATE
     Dosage: 30 MG, Q4MONTHS
     Route: 058
     Dates: start: 20130807

REACTIONS (1)
  - Death [Fatal]

NARRATIVE: CASE EVENT DATE: 20130914
